FAERS Safety Report 9057278 (Version 1)
Quarter: 2013Q1

REPORT INFORMATION
  Report Type: Report from Study
  Country: JP (occurrence: JP)
  Receive Date: 20130131
  Receipt Date: 20130131
  Transmission Date: 20140127
  Serious: Yes (Other)
  Sender: FDA-Public Use
  Company Number: JP-GLAXOSMITHKLINE-B0860436A

PATIENT
  Age: 81 None
  Sex: Female
  Weight: 48 kg

DRUGS (7)
  1. TYKERB [Suspect]
     Indication: BREAST CANCER
     Route: 048
     Dates: start: 20100205
  2. XELODA [Suspect]
     Route: 048
     Dates: start: 20100205, end: 20100423
  3. XELODA [Suspect]
     Route: 048
     Dates: start: 20100528
  4. HYSRON-H [Concomitant]
     Indication: BREAST CANCER
     Route: 048
     Dates: start: 20100108, end: 20100806
  5. PETROLATUM SALICYLATE [Concomitant]
     Indication: PROPHYLAXIS
     Route: 061
     Dates: start: 20100205, end: 20100423
  6. OMEPRAL [Concomitant]
     Indication: GASTRITIS PROPHYLAXIS
     Route: 048
  7. ADEROXAL [Concomitant]
     Indication: PROPHYLAXIS
     Route: 061
     Dates: start: 20100205

REACTIONS (7)
  - Candida infection [Recovered/Resolved]
  - Liver disorder [Recovering/Resolving]
  - Rash [Recovering/Resolving]
  - Diarrhoea [Recovered/Resolved]
  - Stomatitis [Recovered/Resolved]
  - Hypoaesthesia [Not Recovered/Not Resolved]
  - Malaise [Recovered/Resolved]
